FAERS Safety Report 22320847 (Version 1)
Quarter: 2023Q2

REPORT INFORMATION
  Report Type: Report from Study
  Country: JP (occurrence: JP)
  Receive Date: 20230515
  Receipt Date: 20230515
  Transmission Date: 20230722
  Serious: Yes (Hospitalization, Other)
  Sender: FDA-Public Use
  Company Number: JP-VIIV HEALTHCARE LIMITED-JP2023JPN033532

PATIENT

DRUGS (16)
  1. DOLUTEGRAVIR [Suspect]
     Active Substance: DOLUTEGRAVIR
     Indication: HIV infection
     Dosage: 50 MG, 1D
     Route: 048
     Dates: start: 20220928
  2. DESCOVY [Suspect]
     Active Substance: EMTRICITABINE\TENOFOVIR ALAFENAMIDE FUMARATE
     Indication: HIV infection
     Dosage: 1 DF, 1D
     Route: 048
     Dates: start: 20170223
  3. NORVIR [Suspect]
     Active Substance: RITONAVIR
     Indication: HIV infection
     Dosage: 200 MG
     Dates: start: 20170223
  4. PREZISTA [Suspect]
     Active Substance: DARUNAVIR ETHANOLATE
     Indication: HIV infection
     Dosage: 1200 MG, 1D
     Dates: start: 20170223
  5. ISENTRESS [Suspect]
     Active Substance: RALTEGRAVIR POTASSIUM
     Indication: HIV infection
     Dosage: 800 MG, 1D
     Dates: start: 20170223, end: 20220927
  6. INTELENCE [Suspect]
     Active Substance: ETRAVIRINE
     Indication: HIV infection
     Dosage: 400 MG, 1D
     Dates: start: 20170223, end: 20220927
  7. PIFELTRO [Concomitant]
     Active Substance: DORAVIRINE
     Indication: HIV infection
     Dosage: 100 MG, 1D
     Dates: start: 20220928
  8. PIFELTRO [Concomitant]
     Active Substance: DORAVIRINE
     Indication: Drug resistance
  9. PARIET TABLET [Concomitant]
     Dosage: UNK
     Dates: start: 20170223
  10. LIVACT GRANULES [Concomitant]
     Indication: Liver disorder
     Dosage: UNK
     Dates: start: 20170223
  11. URSO [Concomitant]
     Active Substance: URSODIOL
     Dosage: UNK
     Dates: start: 20170223
  12. BONALON ORAL JELLY [Concomitant]
     Indication: Osteoporosis
     Dosage: UNK
     Dates: start: 20170628
  13. ADYNOVATE [Concomitant]
     Active Substance: ANTIHEMOPHILIC FACTOR, HUMAN RECOMBINANT
     Dosage: UNK
     Dates: start: 20181128
  14. CARBOCYSTEINE [Concomitant]
     Active Substance: CARBOCYSTEINE
     Dosage: UNK
     Dates: start: 20170223, end: 20181225
  15. CARBOCYSTEINE [Concomitant]
     Active Substance: CARBOCYSTEINE
     Dosage: UNK
     Dates: start: 20190227
  16. VESICARE [Concomitant]
     Active Substance: SOLIFENACIN SUCCINATE
     Dosage: UNK
     Dates: start: 20191030

REACTIONS (2)
  - Pathogen resistance [Not Recovered/Not Resolved]
  - Hepatocellular carcinoma [Not Recovered/Not Resolved]

NARRATIVE: CASE EVENT DATE: 20220824
